FAERS Safety Report 10267500 (Version 1)
Quarter: 2014Q2

REPORT INFORMATION
  Report Type: Other
  Country: IT (occurrence: IT)
  Receive Date: 20140630
  Receipt Date: 20140630
  Transmission Date: 20141212
  Serious: Yes (Other)
  Sender: FDA-Public Use
  Company Number: IT-TAKEDA-2014JNJ004042

PATIENT
  Sex: 0

DRUGS (2)
  1. VELCADE [Suspect]
     Indication: PLASMA CELL MYELOMA
     Dosage: 2.2 MG/M2, UNK
     Route: 058
     Dates: start: 20140203, end: 20140531
  2. ALKERAN [Suspect]
     Indication: PLASMA CELL MYELOMA
     Dosage: 16 MG, UNK
     Route: 048
     Dates: start: 20140203

REACTIONS (2)
  - Faecal incontinence [Recovering/Resolving]
  - Incontinence [Recovering/Resolving]
